FAERS Safety Report 6734025-8 (Version None)
Quarter: 2010Q2

REPORT INFORMATION
  Report Type: 
  Country: None (occurrence: None)
  Receive Date: 20100520
  Receipt Date: 20100512
  Transmission Date: 20101027
  Serious: Yes (Other)
  Sender: FDA-Public Use
  Company Number: US-AMGEN-QUU408942

PATIENT
  Sex: Male
  Weight: 78.9 kg

DRUGS (4)
  1. NPLATE [Suspect]
     Indication: IDIOPATHIC THROMBOCYTOPENIC PURPURA
     Route: 058
     Dates: start: 20090611, end: 20091210
  2. IMMU-G [Concomitant]
     Dates: start: 20090306
  3. PROMACTA [Concomitant]
     Dates: start: 20091203
  4. LEVAQUIN [Concomitant]
     Dates: start: 20091116, end: 20091123

REACTIONS (5)
  - DYSPNOEA [None]
  - FATIGUE [None]
  - PRURITUS [None]
  - RASH [None]
  - SWELLING [None]
